FAERS Safety Report 5489557-X (Version None)
Quarter: 2007Q4

REPORT INFORMATION
  Report Type: 
  Country: None (occurrence: None)
  Receive Date: 20071016
  Receipt Date: 20071016
  Transmission Date: 20080405
  Serious: Yes (Other)
  Sender: FDA-Public Use
  Company Number: None

PATIENT
  Age: 48 Year
  Sex: Male
  Weight: 74.8435 kg

DRUGS (4)
  1. TESTOSTERONE [Suspect]
     Indication: FATIGUE
     Dosage: 200MG EVERY 7 TO 10 DAYS 100MG EVERY 7 TO 10 DAYS
     Dates: start: 20030101, end: 20041027
  2. TESTOSTERONE [Suspect]
     Indication: HEPATITIS C
     Dosage: 200MG EVERY 7 TO 10 DAYS 100MG EVERY 7 TO 10 DAYS
     Dates: start: 20030101, end: 20041027
  3. TESTOSTERONE [Suspect]
     Indication: LOSS OF LIBIDO
     Dosage: 200MG EVERY 7 TO 10 DAYS 100MG EVERY 7 TO 10 DAYS
     Dates: start: 20030101, end: 20041027
  4. TESTOSTERONE [Suspect]
     Indication: WEIGHT DECREASED
     Dosage: 200MG EVERY 7 TO 10 DAYS 100MG EVERY 7 TO 10 DAYS
     Dates: start: 20030101, end: 20041027

REACTIONS (8)
  - BACK PAIN [None]
  - BLOOD TESTOSTERONE INCREASED [None]
  - HEADACHE [None]
  - HEPATOCELLULAR DAMAGE [None]
  - IMPRISONMENT [None]
  - METABOLIC DISORDER [None]
  - SEXUAL ABUSE [None]
  - TESTICULAR PAIN [None]
